FAERS Safety Report 15009878 (Version 2)
Quarter: 2018Q2

REPORT INFORMATION
  Report Type: Spontaneous
  Country: IT (occurrence: IT)
  Receive Date: 20180614
  Receipt Date: 20180622
  Transmission Date: 20180711
  Serious: Yes (Other)
  Sender: FDA-Public Use
  Company Number: IT-SUN PHARMACEUTICAL INDUSTRIES LTD-2018RR-175704

PATIENT

DRUGS (2)
  1. ALPRAZOLAM. [Suspect]
     Active Substance: ALPRAZOLAM
     Indication: SEDATION
     Dosage: ()
     Route: 048
     Dates: start: 20180515, end: 20180515
  2. QUETIAPINE. [Suspect]
     Active Substance: QUETIAPINE
     Indication: SEDATION
     Dosage: ()
     Route: 048

REACTIONS (4)
  - Toxicity to various agents [Recovering/Resolving]
  - Drug abuse [Recovering/Resolving]
  - Loss of consciousness [Recovering/Resolving]
  - Clonus [Recovering/Resolving]

NARRATIVE: CASE EVENT DATE: 20180515
